FAERS Safety Report 4566324-2 (Version None)
Quarter: 2005Q1

REPORT INFORMATION
  Report Type: 
  Country: None (occurrence: None)
  Receive Date: 20050126
  Receipt Date: 20050126
  Transmission Date: 20050727
  Serious: Yes (Other)
  Sender: FDA-Public Use
  Company Number: None

PATIENT
  Age: 60 Year
  Sex: Male
  Weight: 84 kg

DRUGS (2)
  1. GEODON [Suspect]
     Indication: COGNITIVE DISORDER
     Dosage: 40MG   Q8H   INTRAVENOU
     Route: 042
     Dates: start: 20040604, end: 20040628
  2. GEODON [Suspect]
     Indication: DEMENTIA
     Dosage: 40MG   Q8H   INTRAVENOU
     Route: 042
     Dates: start: 20040604, end: 20040628

REACTIONS (1)
  - TACHYCARDIA [None]
